FAERS Safety Report 24731301 (Version 1)
Quarter: 2024Q4

REPORT INFORMATION
  Report Type: Report from Study
  Country: GB (occurrence: GB)
  Receive Date: 20241213
  Receipt Date: 20241213
  Transmission Date: 20250114
  Serious: Yes (Hospitalization, Other)
  Sender: SAMSUNG BIOEPIS
  Company Number: GB-SAMSUNG BIOEPIS-SB-2024-33817

PATIENT
  Age: 82 Year
  Sex: Male

DRUGS (2)
  1. IMRALDI [Suspect]
     Active Substance: ADALIMUMAB
     Indication: Ankylosing spondylitis
     Dosage: FORM STRENGTH: 40 MG/0.8 ML;
     Route: 058
  2. IMRALDI [Suspect]
     Active Substance: ADALIMUMAB

REACTIONS (3)
  - Deafness permanent [Unknown]
  - Cellulitis [Unknown]
  - Urinary tract infection [Unknown]
